FAERS Safety Report 9341562 (Version 2)
Quarter: 2013Q3

REPORT INFORMATION
  Report Type: Other
  Country: FR (occurrence: FR)
  Receive Date: 20130611
  Receipt Date: 20130926
  Transmission Date: 20140515
  Serious: Yes (Life-Threatening, Other)
  Sender: FDA-Public Use
  Company Number: FR-MPIJNJ-2013-04257

PATIENT
  Sex: 0

DRUGS (3)
  1. VELCADE [Suspect]
     Indication: PLASMA CELL MYELOMA
     Dosage: 3.5 MG, UNK
     Route: 042
     Dates: start: 201011, end: 201105
  2. REVLIMID [Concomitant]
     Dosage: 25 MG, UNK
     Route: 048
     Dates: end: 20130226
  3. DEXAMETHASONE [Concomitant]
     Dosage: 40 MG, UNK
     Dates: start: 201210, end: 201302

REACTIONS (1)
  - Leiomyosarcoma [Recovering/Resolving]
